FAERS Safety Report 24863158 (Version 1)
Quarter: 2025Q1

REPORT INFORMATION
  Report Type: Spontaneous
  Country: US (occurrence: US)
  Receive Date: 20250120
  Receipt Date: 20250120
  Transmission Date: 20250409
  Serious: No
  Sender: SANOFI AVENTIS
  Company Number: US-SA-2025SA016448

PATIENT
  Age: 46 Year
  Sex: Male

DRUGS (4)
  1. DUPIXENT [Suspect]
     Active Substance: DUPILUMAB
     Indication: Dermatitis atopic
     Dosage: 300 MG, QOW
     Route: 058
     Dates: start: 20241206
  2. FLUOCINONIDE [Concomitant]
     Active Substance: FLUOCINONIDE
  3. MINOXIDIL [Concomitant]
     Active Substance: MINOXIDIL
  4. TACROLIMUS [Concomitant]
     Active Substance: TACROLIMUS

REACTIONS (1)
  - Sleep disorder due to a general medical condition [Unknown]
